FAERS Safety Report 5556994-4 (Version None)
Quarter: 2007Q4

REPORT INFORMATION
  Report Type: 
  Country: None (occurrence: None)
  Receive Date: 20071211
  Receipt Date: 20071211
  Transmission Date: 20080405
  Serious: Yes (Life-Threatening, Other)
  Sender: FDA-Public Use
  Company Number: None

PATIENT
  Sex: Female
  Weight: 68.0396 kg

DRUGS (2)
  1. FENTANYL [Suspect]
     Indication: ARTHRALGIA
     Dosage: 1 PATCH EVERY 3 DAYS CUTANEOUS
     Route: 003
     Dates: start: 20071130, end: 20071130
  2. FENTANYL [Suspect]
     Indication: BACK PAIN
     Dosage: 1 PATCH EVERY 3 DAYS CUTANEOUS
     Route: 003
     Dates: start: 20071130, end: 20071130

REACTIONS (4)
  - DYSPNOEA [None]
  - FEAR [None]
  - HEART RATE INCREASED [None]
  - THROAT TIGHTNESS [None]
